FAERS Safety Report 23755478 (Version 2)
Quarter: 2024Q2

REPORT INFORMATION
  Report Type: Spontaneous
  Country: JP (occurrence: JP)
  Receive Date: 20240418
  Receipt Date: 20240425
  Transmission Date: 20240716
  Serious: Yes (Other)
  Sender: FDA-Public Use
  Company Number: JP-SANDOZ-SDZ2024JP038755

PATIENT
  Age: 68 Year
  Sex: Male

DRUGS (3)
  1. OLOPATADINE [Suspect]
     Active Substance: OLOPATADINE
     Indication: Conjunctivitis allergic
     Dosage: UNK
     Route: 047
  2. ALESION [Concomitant]
     Active Substance: EPINASTINE HYDROCHLORIDE
     Indication: Product used for unknown indication
     Dosage: UNK
     Route: 047
  3. PIRENOXINE [Concomitant]
     Active Substance: PIRENOXINE
     Indication: Product used for unknown indication
     Dosage: UNK
     Route: 047

REACTIONS (2)
  - Angina pectoris [Recovered/Resolved]
  - Wrong drug [Unknown]
